FAERS Safety Report 11590987 (Version 2)
Quarter: 2015Q4

REPORT INFORMATION
  Report Type: Other
  Country: IT (occurrence: IT)
  Receive Date: 20151003
  Receipt Date: 20151005
  Transmission Date: 20160304
  Serious: Yes (Life-Threatening)
  Sender: FDA-Public Use
  Company Number: IT-SUN PHARMACEUTICAL INDUSTRIES LTD-12SUNOX104P

PATIENT

DRUGS (3)
  1. OXALIPLATIN 5 MG/ML, CONCENTRATE FOR SOLUTION FOR INFUSION [Suspect]
     Active Substance: OXALIPLATIN
     Indication: ADENOCARCINOMA OF COLON
     Dosage: 85 MG/M2, CYCLICAL
     Route: 042
     Dates: start: 20120308, end: 20120705
  2. ACIDO FOLINICO [Concomitant]
     Indication: ADENOCARCINOMA OF COLON
     Dosage: 170 MG/KG, UNK
     Route: 042
     Dates: start: 20120308, end: 20120705
  3. FLUOROURACILE [Concomitant]
     Active Substance: FLUOROURACIL
     Indication: ADENOCARCINOMA OF COLON
     Dosage: UNK
     Route: 042
     Dates: start: 20120308, end: 20120705

REACTIONS (5)
  - Loss of consciousness [Recovering/Resolving]
  - Dyspnoea [Recovering/Resolving]
  - Hypotension [Recovering/Resolving]
  - Miosis [Recovering/Resolving]
  - Trismus [Recovering/Resolving]

NARRATIVE: CASE EVENT DATE: 20120705
